FAERS Safety Report 10599600 (Version 2)
Quarter: 2014Q4

REPORT INFORMATION
  Report Type: Report from Study
  Country: US (occurrence: US)
  Receive Date: 20141121
  Receipt Date: 20141121
  Transmission Date: 20150529
  Serious: Yes (Hospitalization, Other)
  Sender: FDA-Public Use
  Company Number: US-GILEAD-2014-0121220

PATIENT
  Age: 24 Year
  Sex: Male

DRUGS (2)
  1. AZTREONAM LYSINE [Suspect]
     Active Substance: AZTREONAM LYSINE
     Indication: CYSTIC FIBROSIS
     Dosage: 75 MG, TID, CYCLICAL
     Route: 055
     Dates: start: 20130103, end: 20141022
  2. AZTREONAM LYSINE [Suspect]
     Active Substance: AZTREONAM LYSINE
     Indication: PSEUDOMONAS TEST POSITIVE
     Dosage: 75 MG, TID, CYCLICAL
     Route: 055
     Dates: start: 201411

REACTIONS (4)
  - Bronchitis [Unknown]
  - Cystic fibrosis related diabetes [Unknown]
  - Cystic fibrosis [Unknown]
  - Sinusitis [Unknown]
